FAERS Safety Report 7785666-0 (Version None)
Quarter: 2011Q3

REPORT INFORMATION
  Report Type: 
  Country: None (occurrence: None)
  Receive Date: 20110929
  Receipt Date: 20110929
  Transmission Date: 20111222
  Serious: Yes (Life-Threatening, Hospitalization, Other)
  Sender: FDA-Public Use
  Company Number: None

PATIENT
  Age: 38 Year
  Sex: Female
  Weight: 111.13 kg

DRUGS (1)
  1. TOPAMAX [Suspect]
     Indication: DIABETIC NEUROPATHY
     Dosage: 25MG INCREASE EVERY 4 DAYS
     Dates: start: 20101201, end: 20101220

REACTIONS (6)
  - ABNORMAL BEHAVIOUR [None]
  - LACERATION [None]
  - ANGER [None]
  - SUICIDE ATTEMPT [None]
  - SCAR [None]
  - FEELING ABNORMAL [None]
